FAERS Safety Report 9808843 (Version 1)
Quarter: 2014Q1

REPORT INFORMATION
  Report Type: Spontaneous
  Country: GB (occurrence: GB)
  Receive Date: 20140110
  Receipt Date: 20140110
  Transmission Date: 20141002
  Serious: Yes (Life-Threatening, Hospitalization)
  Sender: FDA-Public Use
  Company Number: GB-ASTRAZENECA-2014SE01880

PATIENT
  Age: 82 Year
  Sex: Male
  Weight: 100 kg

DRUGS (11)
  1. LISINOPRIL [Suspect]
     Indication: HYPERTENSION
     Route: 048
     Dates: end: 20131218
  2. AMITRIPTYLINE [Concomitant]
     Route: 048
  3. ASPIRIN [Concomitant]
     Indication: HYPERTENSION
     Route: 048
  4. DILTIAZEM [Concomitant]
     Indication: ANGINA PECTORIS
     Route: 048
  5. DOXAZOSIN [Concomitant]
     Indication: HYPERTENSION
     Route: 048
  6. FLUVASTATIN [Concomitant]
     Indication: HYPERCHOLESTEROLAEMIA
     Route: 048
  7. FUROSEMIDE [Concomitant]
     Indication: CARDIAC FAILURE CONGESTIVE
     Route: 048
  8. METFORMIN [Concomitant]
     Indication: DIABETES MELLITUS
     Route: 048
  9. NICORANDIL [Concomitant]
     Indication: ANGINA PECTORIS
     Route: 048
  10. NOVOMIX [Concomitant]
     Indication: DIABETES MELLITUS
     Route: 058
  11. OMEPRAZOLE [Concomitant]
     Indication: GASTROOESOPHAGEAL REFLUX DISEASE
     Route: 048

REACTIONS (2)
  - Obstructive airways disorder [Recovering/Resolving]
  - Angioedema [Recovering/Resolving]
